FAERS Safety Report 7306128-0 (Version None)
Quarter: 2011Q1

REPORT INFORMATION
  Report Type: 
  Country: None (occurrence: None)
  Receive Date: 20110210
  Receipt Date: 20110204
  Transmission Date: 20110831
  Serious: Yes (Other)
  Sender: FDA-Public Use
  Company Number: 2011SP005597

PATIENT
  Age: 48 Year
  Sex: Male

DRUGS (3)
  1. NEUPOGEN [Concomitant]
  2. REBETOL [Suspect]
     Indication: HEPATITIS C
     Dosage: PO
     Route: 048
     Dates: start: 20100813
  3. VIRAFERONPEG [Suspect]
     Indication: HEPATITIS C
     Dosage: 120 MCG; QW; SC
     Route: 058
     Dates: start: 20100813, end: 20101113

REACTIONS (6)
  - NODULE [None]
  - MUCOUS MEMBRANE DISORDER [None]
  - SARCOIDOSIS [None]
  - SKIN LESION [None]
  - LYMPHADENOPATHY [None]
  - SCROTAL DISORDER [None]
